FAERS Safety Report 14254854 (Version 2)
Quarter: 2018Q1

REPORT INFORMATION
  Report Type: Spontaneous
  Country: NO (occurrence: NO)
  Receive Date: 20171206
  Receipt Date: 20180331
  Transmission Date: 20180508
  Serious: Yes (Other)
  Sender: FDA-Public Use
  Company Number: NO-AUROBINDO-AUR-APL-2017-44332

PATIENT
  Sex: Female

DRUGS (293)
  1. KETORAX [Suspect]
     Active Substance: KETOBEMIDONE HYDROCHLORIDE
     Dosage: ()
     Route: 065
  2. ORAMORPH [Suspect]
     Active Substance: MORPHINE SULFATE
     Dosage: ()
     Route: 065
  3. TARGINIQ ER [Suspect]
     Active Substance: NALOXONE HYDROCHLORIDE\OXYCODONE HYDROCHLORIDE
     Dosage: UNK ()
     Route: 065
  4. TARGINIQ ER [Suspect]
     Active Substance: NALOXONE HYDROCHLORIDE\OXYCODONE HYDROCHLORIDE
     Dosage: UNK ()
     Route: 065
  5. BUSCOPAN [Suspect]
     Active Substance: BUTYLSCOPOLAMINE BROMIDE
     Dosage: ()
     Route: 065
  6. STESOLID [Suspect]
     Active Substance: DIAZEPAM
     Dosage: () ()
  7. STESOLID [Suspect]
     Active Substance: DIAZEPAM
     Dosage: UNK ()
     Route: 065
  8. STESOLID [Suspect]
     Active Substance: DIAZEPAM
     Dosage: ()
     Route: 065
  9. TRAMADOL HYDROCHLORIDE. [Suspect]
     Active Substance: TRAMADOL HYDROCHLORIDE
     Indication: PAIN
     Dosage: UNK () ()
     Route: 065
  10. TRAMADOL HYDROCHLORIDE. [Suspect]
     Active Substance: TRAMADOL HYDROCHLORIDE
     Dosage: UNK ()
     Route: 065
  11. SOBRIL [Suspect]
     Active Substance: OXAZEPAM
     Dosage: UNK ()
     Route: 065
  12. ONDANSETRON [Suspect]
     Active Substance: ONDANSETRON
     Dosage: UNK ()
     Route: 065
  13. NOZINAN                            /00038601/ [Suspect]
     Active Substance: LEVOMEPROMAZINE
     Dosage: UNK ()
  14. ZOFRAN [Suspect]
     Active Substance: ONDANSETRON HYDROCHLORIDE
     Dosage: UNK ()
  15. ZOFRAN [Suspect]
     Active Substance: ONDANSETRON HYDROCHLORIDE
     Dosage: UNK ()
  16. ZOFRAN [Suspect]
     Active Substance: ONDANSETRON HYDROCHLORIDE
     Dosage: ()
     Route: 065
  17. PREDNISOLONE. [Suspect]
     Active Substance: PREDNISOLONE
     Indication: PRODUCT USED FOR UNKNOWN INDICATION
     Dosage: UNK
     Route: 065
  18. PREDNISOLONE. [Suspect]
     Active Substance: PREDNISOLONE
     Dosage: ()
     Route: 065
  19. PREDNISOLONE. [Suspect]
     Active Substance: PREDNISOLONE
     Dosage: ()
     Route: 065
  20. AFIPRAN [Suspect]
     Active Substance: METOCLOPRAMIDE HYDROCHLORIDE
     Dosage: UNK ()
  21. AFIPRAN [Suspect]
     Active Substance: METOCLOPRAMIDE HYDROCHLORIDE
     Dosage: ()
     Route: 065
  22. ZOPICLONE [Suspect]
     Active Substance: ZOPICLONE
     Dosage: ()
     Route: 065
  23. ZOPICLONE [Suspect]
     Active Substance: ZOPICLONE
     Dosage: ()
     Route: 065
  24. ZOPICLONE [Suspect]
     Active Substance: ZOPICLONE
     Dosage: ()
     Route: 065
  25. BACLOFEN. [Suspect]
     Active Substance: BACLOFEN
     Dosage: ()
     Route: 065
  26. METOCLOPRAMIDE. [Suspect]
     Active Substance: METOCLOPRAMIDE
     Indication: PRODUCT USED FOR UNKNOWN INDICATION
     Dosage: UNK ()
  27. METOCLOPRAMIDE. [Suspect]
     Active Substance: METOCLOPRAMIDE
     Dosage: ()
     Route: 065
  28. SOMAC [Suspect]
     Active Substance: PANTOPRAZOLE SODIUM
     Dosage: () ()
  29. SOMAC [Suspect]
     Active Substance: PANTOPRAZOLE SODIUM
     Dosage: ()
     Route: 065
  30. SETOFILM [Suspect]
     Active Substance: ONDANSETRON
     Indication: PRODUCT USED FOR UNKNOWN INDICATION
     Dosage: UNK
     Route: 065
  31. OXYNORM [Suspect]
     Active Substance: OXYCODONE HYDROCHLORIDE
     Dosage: UNK ()
     Route: 065
  32. DIAZEPAM. [Suspect]
     Active Substance: DIAZEPAM
     Dosage: ()
     Route: 065
  33. KETORAX [Suspect]
     Active Substance: KETOBEMIDONE HYDROCHLORIDE
     Dosage: UNK ()
  34. KETORAX [Suspect]
     Active Substance: KETOBEMIDONE HYDROCHLORIDE
     Dosage: ()
  35. NEURONTIN [Suspect]
     Active Substance: GABAPENTIN
     Indication: PRODUCT USED FOR UNKNOWN INDICATION
     Dosage: UNK
  36. NEURONTIN [Suspect]
     Active Substance: GABAPENTIN
     Dosage: ()
     Route: 065
  37. PINEX FORTE [Suspect]
     Active Substance: ACETAMINOPHEN\CODEINE PHOSPHATE
     Indication: PRODUCT USED FOR UNKNOWN INDICATION
     Dosage: () ()
  38. PINEX FORTE [Suspect]
     Active Substance: ACETAMINOPHEN\CODEINE PHOSPHATE
     Dosage: UNK ()
     Route: 065
  39. ORAMORPH [Suspect]
     Active Substance: MORPHINE SULFATE
     Dosage: UNK ()
     Route: 065
  40. BUSCOPAN [Suspect]
     Active Substance: BUTYLSCOPOLAMINE BROMIDE
     Dosage: ()
     Route: 065
  41. BUSCOPAN [Suspect]
     Active Substance: BUTYLSCOPOLAMINE BROMIDE
     Dosage: ()
     Route: 065
  42. TRAMADOL HYDROCHLORIDE. [Suspect]
     Active Substance: TRAMADOL HYDROCHLORIDE
     Dosage: UNK ()
     Route: 065
  43. SOBRIL [Suspect]
     Active Substance: OXAZEPAM
     Indication: PRODUCT USED FOR UNKNOWN INDICATION
     Dosage: UNK
     Route: 065
  44. SOBRIL [Suspect]
     Active Substance: OXAZEPAM
     Dosage: ()
     Route: 065
  45. SOBRIL [Suspect]
     Active Substance: OXAZEPAM
     Dosage: ()
     Route: 065
  46. ONDANSETRON [Suspect]
     Active Substance: ONDANSETRON
     Dosage: UNK ()
     Route: 065
  47. ONDANSETRON [Suspect]
     Active Substance: ONDANSETRON
     Dosage: UNK ()
     Route: 065
  48. ONDANSETRON [Suspect]
     Active Substance: ONDANSETRON
     Dosage: UNK ()
     Route: 065
  49. NOZINAN                            /00038601/ [Suspect]
     Active Substance: LEVOMEPROMAZINE
     Dosage: ()
     Route: 065
  50. FLUCONAZOL [Suspect]
     Active Substance: FLUCONAZOLE
     Route: 065
  51. ZOPICLONE [Suspect]
     Active Substance: ZOPICLONE
     Dosage: ()
  52. SOMAC [Suspect]
     Active Substance: PANTOPRAZOLE SODIUM
     Indication: PRODUCT USED FOR UNKNOWN INDICATION
     Dosage: () ()
  53. MIDAZOLAM [Suspect]
     Active Substance: MIDAZOLAM HYDROCHLORIDE
     Dosage: ()
     Route: 065
  54. SETOFILM [Suspect]
     Active Substance: ONDANSETRON
     Dosage: () ()
     Route: 065
  55. OXYNORM [Suspect]
     Active Substance: OXYCODONE HYDROCHLORIDE
     Dosage: UNK ()
     Route: 065
  56. KETORAX [Suspect]
     Active Substance: KETOBEMIDONE HYDROCHLORIDE
     Dosage: UNK ()
  57. NEURONTIN [Suspect]
     Active Substance: GABAPENTIN
     Indication: PRODUCT USED FOR UNKNOWN INDICATION
     Dosage: UNK ()
     Route: 065
  58. NEURONTIN [Suspect]
     Active Substance: GABAPENTIN
     Dosage: ()
     Route: 065
  59. ORAMORPH [Suspect]
     Active Substance: MORPHINE SULFATE
     Dosage: ()
     Route: 065
  60. ORAMORPH [Suspect]
     Active Substance: MORPHINE SULFATE
     Dosage: ()
     Route: 065
  61. TARGINIQ ER [Suspect]
     Active Substance: NALOXONE HYDROCHLORIDE\OXYCODONE HYDROCHLORIDE
     Dosage: UNK ()
  62. TARGINIQ ER [Suspect]
     Active Substance: NALOXONE HYDROCHLORIDE\OXYCODONE HYDROCHLORIDE
     Dosage: UNK ()
     Route: 065
  63. BUSCOPAN [Suspect]
     Active Substance: BUTYLSCOPOLAMINE BROMIDE
     Dosage: UNK ()
  64. BUSCOPAN [Suspect]
     Active Substance: BUTYLSCOPOLAMINE BROMIDE
     Dosage: ()
     Route: 065
  65. BUSCOPAN [Suspect]
     Active Substance: BUTYLSCOPOLAMINE BROMIDE
     Dosage: ()
     Route: 065
  66. BUSCOPAN [Suspect]
     Active Substance: BUTYLSCOPOLAMINE BROMIDE
     Dosage: ()
     Route: 065
  67. STESOLID [Suspect]
     Active Substance: DIAZEPAM
     Dosage: ()
     Route: 065
  68. TRAMADOL HYDROCHLORIDE. [Suspect]
     Active Substance: TRAMADOL HYDROCHLORIDE
     Dosage: UNK ()
     Route: 065
  69. TRAMADOL HYDROCHLORIDE. [Suspect]
     Active Substance: TRAMADOL HYDROCHLORIDE
     Dosage: UNK ()
     Route: 065
  70. TRAMADOL HYDROCHLORIDE. [Suspect]
     Active Substance: TRAMADOL HYDROCHLORIDE
     Dosage: UNK ()
     Route: 065
  71. TRAMADOL HYDROCHLORIDE. [Suspect]
     Active Substance: TRAMADOL HYDROCHLORIDE
     Dosage: UNK ()
     Route: 065
  72. TRAMADOL HYDROCHLORIDE. [Suspect]
     Active Substance: TRAMADOL HYDROCHLORIDE
     Dosage: ()
  73. TRAMADOL HYDROCHLORIDE. [Suspect]
     Active Substance: TRAMADOL HYDROCHLORIDE
     Dosage: UNK ()
     Route: 065
  74. DULCOLAX (BISACODYL) [Suspect]
     Active Substance: BISACODYL
     Dosage: UNK ()
  75. DULCOLAX (BISACODYL) [Suspect]
     Active Substance: BISACODYL
     Dosage: UNK ()
     Route: 065
  76. DULCOLAX (BISACODYL) [Suspect]
     Active Substance: BISACODYL
     Dosage: UNK ()
     Route: 048
  77. VALIUM [Suspect]
     Active Substance: DIAZEPAM
     Dosage: UNK ()
  78. ONDANSETRON [Suspect]
     Active Substance: ONDANSETRON
     Indication: PRODUCT USED FOR UNKNOWN INDICATION
     Dosage: ()
     Route: 065
  79. NOZINAN                            /00038601/ [Suspect]
     Active Substance: LEVOMEPROMAZINE
     Indication: PRODUCT USED FOR UNKNOWN INDICATION
     Dosage: UNK ()
  80. PREDNISOLONE. [Suspect]
     Active Substance: PREDNISOLONE
     Indication: PRODUCT USED FOR UNKNOWN INDICATION
     Dosage: UNK ()
  81. PREDNISOLONE. [Suspect]
     Active Substance: PREDNISOLONE
     Dosage: UNK ()
  82. PREDNISOLONE. [Suspect]
     Active Substance: PREDNISOLONE
     Dosage: ()
     Route: 065
  83. FLUCONAZOL [Suspect]
     Active Substance: FLUCONAZOLE
     Indication: PRODUCT USED FOR UNKNOWN INDICATION
     Dosage: UNK
     Route: 065
  84. FLUCONAZOL [Suspect]
     Active Substance: FLUCONAZOLE
     Indication: PRODUCT USED FOR UNKNOWN INDICATION
     Dosage: UNK ()
  85. AFIPRAN [Suspect]
     Active Substance: METOCLOPRAMIDE HYDROCHLORIDE
     Indication: PRODUCT USED FOR UNKNOWN INDICATION
     Dosage: UNK
     Route: 065
  86. AFIPRAN [Suspect]
     Active Substance: METOCLOPRAMIDE HYDROCHLORIDE
     Indication: PRODUCT USED FOR UNKNOWN INDICATION
     Dosage: () ()
  87. AFIPRAN [Suspect]
     Active Substance: METOCLOPRAMIDE HYDROCHLORIDE
     Dosage: UNK ()
  88. AFIPRAN [Suspect]
     Active Substance: METOCLOPRAMIDE HYDROCHLORIDE
     Dosage: ()
     Route: 065
  89. ZOPICLONE [Suspect]
     Active Substance: ZOPICLONE
     Indication: PRODUCT USED FOR UNKNOWN INDICATION
     Dosage: UNK
     Route: 065
  90. ZOPICLONE [Suspect]
     Active Substance: ZOPICLONE
     Dosage: ()
     Route: 065
  91. METOCLOPRAMIDE. [Suspect]
     Active Substance: METOCLOPRAMIDE
     Dosage: ()
  92. SOMAC [Suspect]
     Active Substance: PANTOPRAZOLE SODIUM
     Dosage: () ()
  93. SOMAC [Suspect]
     Active Substance: PANTOPRAZOLE SODIUM
     Dosage: ()
     Route: 065
  94. MIDAZOLAM [Suspect]
     Active Substance: MIDAZOLAM HYDROCHLORIDE
     Indication: PRODUCT USED FOR UNKNOWN INDICATION
     Dosage: () ()
  95. MIDAZOLAM [Suspect]
     Active Substance: MIDAZOLAM HYDROCHLORIDE
     Dosage: UNK ()
     Route: 065
  96. MIDAZOLAM [Suspect]
     Active Substance: MIDAZOLAM HYDROCHLORIDE
     Dosage: ()
     Route: 065
  97. MIDAZOLAM [Suspect]
     Active Substance: MIDAZOLAM HYDROCHLORIDE
     Dosage: ()
     Route: 065
  98. SETOFILM [Suspect]
     Active Substance: ONDANSETRON
     Dosage: () ()
     Route: 065
  99. OXYNORM [Suspect]
     Active Substance: OXYCODONE HYDROCHLORIDE
     Dosage: UNK ()
     Route: 065
  100. NALOXONE HYDROCHLORIDE. [Suspect]
     Active Substance: NALOXONE HYDROCHLORIDE
     Dosage: ()
     Route: 065
  101. QUETIAPINE. [Concomitant]
     Active Substance: QUETIAPINE
     Dosage: ()
     Route: 065
  102. ZOLPIDEM [Suspect]
     Active Substance: ZOLPIDEM\ZOLPIDEM TARTRATE
     Indication: PRODUCT USED FOR UNKNOWN INDICATION
     Dosage: UNK
     Route: 065
  103. FURIX [Suspect]
     Active Substance: FUROSEMIDE
     Dosage: ()
     Route: 065
  104. KETORAX [Suspect]
     Active Substance: KETOBEMIDONE HYDROCHLORIDE
     Indication: PRODUCT USED FOR UNKNOWN INDICATION
     Dosage: UNK ()
  105. NEURONTIN [Suspect]
     Active Substance: GABAPENTIN
     Dosage: ()
     Route: 065
  106. NEURONTIN [Suspect]
     Active Substance: GABAPENTIN
     Dosage: ()
     Route: 065
  107. PINEX FORTE [Suspect]
     Active Substance: ACETAMINOPHEN\CODEINE PHOSPHATE
     Dosage: ()
     Route: 065
  108. PINEX FORTE [Suspect]
     Active Substance: ACETAMINOPHEN\CODEINE PHOSPHATE
     Dosage: ()
     Route: 065
  109. PINEX FORTE [Suspect]
     Active Substance: ACETAMINOPHEN\CODEINE PHOSPHATE
     Dosage: ()
     Route: 065
  110. ORAMORPH [Suspect]
     Active Substance: MORPHINE SULFATE
     Dosage: UNK ()
     Route: 065
  111. BUSCOPAN [Suspect]
     Active Substance: BUTYLSCOPOLAMINE BROMIDE
     Dosage: ()
  112. STESOLID [Suspect]
     Active Substance: DIAZEPAM
     Dosage: UNK ()
  113. STESOLID [Suspect]
     Active Substance: DIAZEPAM
     Dosage: UNK ()
     Route: 065
  114. STESOLID [Suspect]
     Active Substance: DIAZEPAM
     Dosage: ()
     Route: 065
  115. TRAMADOL HYDROCHLORIDE. [Suspect]
     Active Substance: TRAMADOL HYDROCHLORIDE
     Indication: ABDOMINAL PAIN UPPER
     Dosage: UNK ()
  116. TRAMADOL HYDROCHLORIDE. [Suspect]
     Active Substance: TRAMADOL HYDROCHLORIDE
     Route: 065
  117. DULCOLAX (BISACODYL) [Suspect]
     Active Substance: BISACODYL
     Indication: PRODUCT USED FOR UNKNOWN INDICATION
     Dosage: UNK
     Route: 065
  118. VALIUM [Suspect]
     Active Substance: DIAZEPAM
     Indication: PRODUCT USED FOR UNKNOWN INDICATION
     Dosage: UNK ()
  119. SOBRIL [Suspect]
     Active Substance: OXAZEPAM
     Dosage: ()
     Route: 065
  120. ONDANSETRON [Suspect]
     Active Substance: ONDANSETRON
     Indication: PRODUCT USED FOR UNKNOWN INDICATION
     Dosage: UNK
     Route: 065
  121. NOZINAN                            /00038601/ [Suspect]
     Active Substance: LEVOMEPROMAZINE
     Dosage: UNK ()
  122. ZOFRAN [Suspect]
     Active Substance: ONDANSETRON HYDROCHLORIDE
     Indication: PRODUCT USED FOR UNKNOWN INDICATION
     Dosage: UNK
     Route: 065
  123. ZOFRAN [Suspect]
     Active Substance: ONDANSETRON HYDROCHLORIDE
     Dosage: ()
     Route: 065
  124. FLUCONAZOL [Suspect]
     Active Substance: FLUCONAZOLE
     Dosage: ()
     Route: 065
  125. FLUCONAZOL [Suspect]
     Active Substance: FLUCONAZOLE
     Dosage: ()
     Route: 065
  126. AFIPRAN [Suspect]
     Active Substance: METOCLOPRAMIDE HYDROCHLORIDE
     Dosage: () ()
  127. AFIPRAN [Suspect]
     Active Substance: METOCLOPRAMIDE HYDROCHLORIDE
     Dosage: ()
     Route: 065
  128. ZOPICLONE [Suspect]
     Active Substance: ZOPICLONE
     Dosage: UNK ()
     Route: 065
  129. BACLOFEN. [Suspect]
     Active Substance: BACLOFEN
     Dosage: ()
     Route: 065
  130. BACLOFEN. [Suspect]
     Active Substance: BACLOFEN
     Dosage: ()
     Route: 065
  131. METOCLOPRAMIDE. [Suspect]
     Active Substance: METOCLOPRAMIDE
     Indication: PRODUCT USED FOR UNKNOWN INDICATION
     Dosage: UNK
     Route: 065
  132. METOCLOPRAMIDE. [Suspect]
     Active Substance: METOCLOPRAMIDE
     Dosage: ()
     Route: 065
  133. METOCLOPRAMIDE. [Suspect]
     Active Substance: METOCLOPRAMIDE
     Dosage: ()
     Route: 065
  134. SOMAC [Suspect]
     Active Substance: PANTOPRAZOLE SODIUM
     Dosage: ()
     Route: 065
  135. MIDAZOLAM [Suspect]
     Active Substance: MIDAZOLAM HYDROCHLORIDE
     Dosage: () ()
  136. MIDAZOLAM [Suspect]
     Active Substance: MIDAZOLAM HYDROCHLORIDE
     Dosage: ()
     Route: 065
  137. OXYCODONE HYDROCHLORIDE. [Suspect]
     Active Substance: OXYCODONE HYDROCHLORIDE
     Dosage: ()
     Route: 065
  138. MORPHINE [Suspect]
     Active Substance: MORPHINE
     Indication: PRODUCT USED FOR UNKNOWN INDICATION
     Dosage: UNK ()
     Route: 065
  139. MORPHINE [Suspect]
     Active Substance: MORPHINE
     Dosage: UNK ()
     Route: 065
  140. KETORAX [Suspect]
     Active Substance: KETOBEMIDONE HYDROCHLORIDE
     Indication: PRODUCT USED FOR UNKNOWN INDICATION
     Dosage: UNK
     Route: 065
  141. KETORAX [Suspect]
     Active Substance: KETOBEMIDONE HYDROCHLORIDE
     Dosage: ()
     Route: 065
  142. NEURONTIN [Suspect]
     Active Substance: GABAPENTIN
     Dosage: ()
     Route: 065
  143. PINEX FORTE [Suspect]
     Active Substance: ACETAMINOPHEN\CODEINE PHOSPHATE
     Indication: PRODUCT USED FOR UNKNOWN INDICATION
     Dosage: UNK
  144. PINEX FORTE [Suspect]
     Active Substance: ACETAMINOPHEN\CODEINE PHOSPHATE
     Dosage: () ()
  145. PINEX FORTE [Suspect]
     Active Substance: ACETAMINOPHEN\CODEINE PHOSPHATE
     Dosage: ()
     Route: 065
  146. ORAMORPH [Suspect]
     Active Substance: MORPHINE SULFATE
     Indication: PRODUCT USED FOR UNKNOWN INDICATION
     Dosage: UNK
  147. ORAMORPH [Suspect]
     Active Substance: MORPHINE SULFATE
     Dosage: ()
     Route: 065
  148. ORAMORPH [Suspect]
     Active Substance: MORPHINE SULFATE
     Dosage: ()
     Route: 065
  149. TARGINIQ ER [Suspect]
     Active Substance: NALOXONE HYDROCHLORIDE\OXYCODONE HYDROCHLORIDE
     Indication: PRODUCT USED FOR UNKNOWN INDICATION
     Dosage: UNK
     Route: 065
  150. TARGINIQ ER [Suspect]
     Active Substance: NALOXONE HYDROCHLORIDE\OXYCODONE HYDROCHLORIDE
     Dosage: UNK ()
     Route: 065
  151. TARGINIQ ER [Suspect]
     Active Substance: NALOXONE HYDROCHLORIDE\OXYCODONE HYDROCHLORIDE
     Dosage: UNK ()
     Route: 065
  152. BUSCOPAN [Suspect]
     Active Substance: BUTYLSCOPOLAMINE BROMIDE
     Indication: PRODUCT USED FOR UNKNOWN INDICATION
     Dosage: UNK ()
  153. STESOLID [Suspect]
     Active Substance: DIAZEPAM
     Indication: PRODUCT USED FOR UNKNOWN INDICATION
     Dosage: () ()
  154. STESOLID [Suspect]
     Active Substance: DIAZEPAM
     Dosage: ()
     Route: 065
  155. STESOLID [Suspect]
     Active Substance: DIAZEPAM
     Dosage: ()
     Route: 065
  156. STESOLID [Suspect]
     Active Substance: DIAZEPAM
     Dosage: () ()
  157. STESOLID [Suspect]
     Active Substance: DIAZEPAM
     Dosage: ()
     Route: 065
  158. TRAMADOL HYDROCHLORIDE. [Suspect]
     Active Substance: TRAMADOL HYDROCHLORIDE
     Dosage: UNK ()
     Route: 065
  159. DULCOLAX (BISACODYL) [Suspect]
     Active Substance: BISACODYL
     Indication: PRODUCT USED FOR UNKNOWN INDICATION
     Dosage: UNK ()
  160. DULCOLAX (BISACODYL) [Suspect]
     Active Substance: BISACODYL
     Dosage: ()
     Route: 048
  161. DULCOLAX (BISACODYL) [Suspect]
     Active Substance: BISACODYL
     Dosage: UNK ()
     Route: 048
  162. VALIUM [Suspect]
     Active Substance: DIAZEPAM
     Dosage: ()
     Route: 065
  163. VALIUM [Suspect]
     Active Substance: DIAZEPAM
     Dosage: ()
     Route: 065
  164. SOBRIL [Suspect]
     Active Substance: OXAZEPAM
     Dosage: ()
     Route: 065
  165. NOZINAN                            /00038601/ [Suspect]
     Active Substance: LEVOMEPROMAZINE
     Dosage: ()
     Route: 065
  166. FLUCONAZOL [Suspect]
     Active Substance: FLUCONAZOLE
     Dosage: ()
     Route: 065
  167. FLUCONAZOL [Suspect]
     Active Substance: FLUCONAZOLE
     Dosage: ()
     Route: 065
  168. AFIPRAN [Suspect]
     Active Substance: METOCLOPRAMIDE HYDROCHLORIDE
     Dosage: ()
  169. AFIPRAN [Suspect]
     Active Substance: METOCLOPRAMIDE HYDROCHLORIDE
     Dosage: ()
     Route: 065
  170. BACLOFEN. [Suspect]
     Active Substance: BACLOFEN
     Dosage: UNK ()
  171. BACLOFEN. [Suspect]
     Active Substance: BACLOFEN
     Dosage: ()
  172. BACLOFEN. [Suspect]
     Active Substance: BACLOFEN
     Dosage: ()
     Route: 065
  173. SOMAC [Suspect]
     Active Substance: PANTOPRAZOLE SODIUM
     Indication: PRODUCT USED FOR UNKNOWN INDICATION
     Dosage: UNK
     Route: 065
  174. SOMAC [Suspect]
     Active Substance: PANTOPRAZOLE SODIUM
     Dosage: ()
     Route: 065
  175. SOMAC [Suspect]
     Active Substance: PANTOPRAZOLE SODIUM
     Dosage: ()
     Route: 065
  176. MIDAZOLAM [Suspect]
     Active Substance: MIDAZOLAM HYDROCHLORIDE
     Dosage: ()
     Route: 065
  177. MIDAZOLAM [Suspect]
     Active Substance: MIDAZOLAM HYDROCHLORIDE
     Dosage: ()
     Route: 065
  178. SETOFILM [Suspect]
     Active Substance: ONDANSETRON
     Dosage: UNK ()
     Route: 065
  179. OXYNORM [Suspect]
     Active Substance: OXYCODONE HYDROCHLORIDE
     Dosage: UNK ()
     Route: 065
  180. NALOXONE HYDROCHLORIDE. [Suspect]
     Active Substance: NALOXONE HYDROCHLORIDE
     Indication: DRUG ABUSE
     Dosage: ()
  181. BISACODYL. [Suspect]
     Active Substance: BISACODYL
     Indication: PRODUCT USED FOR UNKNOWN INDICATION
     Dosage: ()
     Route: 065
  182. BISACODYL. [Suspect]
     Active Substance: BISACODYL
     Dosage: ()
     Route: 065
  183. GABAPENTIN. [Suspect]
     Active Substance: GABAPENTIN
     Dosage: ()
     Route: 065
  184. ZOLPIDEM [Suspect]
     Active Substance: ZOLPIDEM\ZOLPIDEM TARTRATE
     Dosage: UNK ()
     Route: 048
  185. ZOLPIDEM [Suspect]
     Active Substance: ZOLPIDEM\ZOLPIDEM TARTRATE
     Dosage: UNK ()
     Route: 048
  186. MORPHINE [Suspect]
     Active Substance: MORPHINE
     Indication: INTENTIONAL PRODUCT MISUSE
     Dosage: UNK
     Route: 065
  187. KETORAX [Suspect]
     Active Substance: KETOBEMIDONE HYDROCHLORIDE
     Dosage: ()
     Route: 065
  188. NEURONTIN [Suspect]
     Active Substance: GABAPENTIN
     Dosage: UNK ()
     Route: 065
  189. PINEX FORTE [Suspect]
     Active Substance: ACETAMINOPHEN\CODEINE PHOSPHATE
     Dosage: ()
     Route: 065
  190. PINEX FORTE [Suspect]
     Active Substance: ACETAMINOPHEN\CODEINE PHOSPHATE
     Dosage: ()
     Route: 065
  191. PINEX FORTE [Suspect]
     Active Substance: ACETAMINOPHEN\CODEINE PHOSPHATE
     Dosage: UNK ()
     Route: 065
  192. TARGINIQ ER [Suspect]
     Active Substance: NALOXONE HYDROCHLORIDE\OXYCODONE HYDROCHLORIDE
     Dosage: UNK ()
     Route: 065
  193. TARGINIQ ER [Suspect]
     Active Substance: NALOXONE HYDROCHLORIDE\OXYCODONE HYDROCHLORIDE
     Dosage: UNK ()
     Route: 065
  194. TARGINIQ ER [Suspect]
     Active Substance: NALOXONE HYDROCHLORIDE\OXYCODONE HYDROCHLORIDE
     Dosage: UNK ()
     Route: 065
  195. STESOLID [Suspect]
     Active Substance: DIAZEPAM
     Indication: PRODUCT USED FOR UNKNOWN INDICATION
     Dosage: UNK
     Route: 065
  196. TRAMADOL HYDROCHLORIDE. [Suspect]
     Active Substance: TRAMADOL HYDROCHLORIDE
     Dosage: UNK ()
  197. TRAMADOL HYDROCHLORIDE. [Suspect]
     Active Substance: TRAMADOL HYDROCHLORIDE
     Dosage: UNK ()
     Route: 065
  198. TRAMADOL HYDROCHLORIDE. [Suspect]
     Active Substance: TRAMADOL HYDROCHLORIDE
     Dosage: UNK ()
     Route: 065
  199. VALIUM [Suspect]
     Active Substance: DIAZEPAM
     Dosage: ()
     Route: 065
  200. ONDANSETRON [Suspect]
     Active Substance: ONDANSETRON
     Dosage: UNK ()
     Route: 065
  201. NOZINAN                            /00038601/ [Suspect]
     Active Substance: LEVOMEPROMAZINE
     Indication: PRODUCT USED FOR UNKNOWN INDICATION
     Dosage: UNK
     Route: 065
  202. NOZINAN                            /00038601/ [Suspect]
     Active Substance: LEVOMEPROMAZINE
     Dosage: ()
  203. ZOFRAN [Suspect]
     Active Substance: ONDANSETRON HYDROCHLORIDE
     Dosage: UNK ()
  204. AFIPRAN [Suspect]
     Active Substance: METOCLOPRAMIDE HYDROCHLORIDE
     Dosage: UNK ()
  205. BACLOFEN. [Suspect]
     Active Substance: BACLOFEN
     Indication: PRODUCT USED FOR UNKNOWN INDICATION
     Dosage: UNK
     Route: 065
  206. BACLOFEN. [Suspect]
     Active Substance: BACLOFEN
     Indication: PRODUCT USED FOR UNKNOWN INDICATION
     Dosage: UNK ()
  207. METOCLOPRAMIDE. [Suspect]
     Active Substance: METOCLOPRAMIDE
     Dosage: ()
     Route: 065
  208. METOCLOPRAMIDE. [Suspect]
     Active Substance: METOCLOPRAMIDE
     Dosage: UNK ()
  209. METOCLOPRAMIDE. [Suspect]
     Active Substance: METOCLOPRAMIDE
     Dosage: ()
     Route: 065
  210. METOCLOPRAMIDE. [Suspect]
     Active Substance: METOCLOPRAMIDE
     Dosage: ()
     Route: 065
  211. SOMAC [Suspect]
     Active Substance: PANTOPRAZOLE SODIUM
     Dosage: ()
     Route: 065
  212. MIDAZOLAM [Suspect]
     Active Substance: MIDAZOLAM HYDROCHLORIDE
     Indication: PRODUCT USED FOR UNKNOWN INDICATION
     Dosage: UNK
     Route: 065
  213. OXYNORM [Suspect]
     Active Substance: OXYCODONE HYDROCHLORIDE
     Dosage: UNK ()
     Route: 065
  214. OXYNORM [Suspect]
     Active Substance: OXYCODONE HYDROCHLORIDE
     Dosage: UNK ()
     Route: 065
  215. DIAZEPAM. [Suspect]
     Active Substance: DIAZEPAM
     Indication: PRODUCT USED FOR UNKNOWN INDICATION
     Dosage: ()
     Route: 065
  216. FURIX [Suspect]
     Active Substance: FUROSEMIDE
     Indication: PRODUCT USED FOR UNKNOWN INDICATION
     Dosage: UNK
     Route: 065
  217. KETORAX [Suspect]
     Active Substance: KETOBEMIDONE HYDROCHLORIDE
     Dosage: ()
     Route: 065
  218. KETORAX [Suspect]
     Active Substance: KETOBEMIDONE HYDROCHLORIDE
     Dosage: ()
     Route: 065
  219. NEURONTIN [Suspect]
     Active Substance: GABAPENTIN
     Dosage: ()
     Route: 065
  220. NEURONTIN [Suspect]
     Active Substance: GABAPENTIN
     Dosage: UNK ()
     Route: 065
  221. PINEX FORTE [Suspect]
     Active Substance: ACETAMINOPHEN\CODEINE PHOSPHATE
     Dosage: UNK ()
     Route: 065
  222. PINEX FORTE [Suspect]
     Active Substance: ACETAMINOPHEN\CODEINE PHOSPHATE
     Dosage: UNK ()
     Route: 065
  223. ORAMORPH [Suspect]
     Active Substance: MORPHINE SULFATE
     Dosage: UNK ()
     Route: 065
  224. ORAMORPH [Suspect]
     Active Substance: MORPHINE SULFATE
     Dosage: ()
     Route: 065
  225. ORAMORPH [Suspect]
     Active Substance: MORPHINE SULFATE
     Dosage: ()
     Route: 065
  226. TARGINIQ ER [Suspect]
     Active Substance: NALOXONE HYDROCHLORIDE\OXYCODONE HYDROCHLORIDE
     Dosage: UNK ()
     Route: 065
  227. BUSCOPAN [Suspect]
     Active Substance: BUTYLSCOPOLAMINE BROMIDE
     Dosage: UNK ()
  228. TRAMADOL HYDROCHLORIDE. [Suspect]
     Active Substance: TRAMADOL HYDROCHLORIDE
     Indication: ABDOMINAL PAIN UPPER
     Dosage: UNK
     Route: 065
  229. TRAMADOL HYDROCHLORIDE. [Suspect]
     Active Substance: TRAMADOL HYDROCHLORIDE
     Dosage: UNK ()
     Route: 065
  230. VALIUM [Suspect]
     Active Substance: DIAZEPAM
     Indication: PRODUCT USED FOR UNKNOWN INDICATION
     Dosage: UNK
     Route: 065
  231. VALIUM [Suspect]
     Active Substance: DIAZEPAM
     Dosage: UNK ()
  232. SOBRIL [Suspect]
     Active Substance: OXAZEPAM
     Dosage: UNK ()
  233. SOBRIL [Suspect]
     Active Substance: OXAZEPAM
     Dosage: ()
     Route: 065
  234. SOBRIL [Suspect]
     Active Substance: OXAZEPAM
     Dosage: ()
     Route: 065
  235. SOBRIL [Suspect]
     Active Substance: OXAZEPAM
     Dosage: ()
     Route: 065
  236. ZOFRAN [Suspect]
     Active Substance: ONDANSETRON HYDROCHLORIDE
     Dosage: ()
  237. PREDNISOLONE. [Suspect]
     Active Substance: PREDNISOLONE
     Dosage: ()
  238. AFIPRAN [Suspect]
     Active Substance: METOCLOPRAMIDE HYDROCHLORIDE
     Dosage: ()
     Route: 065
  239. AFIPRAN [Suspect]
     Active Substance: METOCLOPRAMIDE HYDROCHLORIDE
     Dosage: ()
     Route: 065
  240. ZOPICLONE [Suspect]
     Active Substance: ZOPICLONE
     Dosage: ()
     Route: 065
  241. ZOPICLONE [Suspect]
     Active Substance: ZOPICLONE
     Dosage: ()
     Route: 065
  242. BACLOFEN. [Suspect]
     Active Substance: BACLOFEN
     Dosage: UNK ()
  243. METOCLOPRAMIDE. [Suspect]
     Active Substance: METOCLOPRAMIDE
     Dosage: UNK ()
  244. SOMAC [Suspect]
     Active Substance: PANTOPRAZOLE SODIUM
     Dosage: UNK ()
  245. MIDAZOLAM [Suspect]
     Active Substance: MIDAZOLAM HYDROCHLORIDE
     Dosage: UNK ()
  246. MIDAZOLAM [Suspect]
     Active Substance: MIDAZOLAM HYDROCHLORIDE
     Dosage: () ()
  247. MIDAZOLAM [Suspect]
     Active Substance: MIDAZOLAM HYDROCHLORIDE
     Dosage: ()
     Route: 065
  248. SETOFILM [Suspect]
     Active Substance: ONDANSETRON
     Dosage: UNK ()
     Route: 065
  249. SETOFILM [Suspect]
     Active Substance: ONDANSETRON
     Dosage: UNK ()
     Route: 065
  250. OXYNORM [Suspect]
     Active Substance: OXYCODONE HYDROCHLORIDE
     Dosage: UNK ()
     Route: 065
  251. PANTOPRAZOLE SODIUM SESQUIHYDRATE [Suspect]
     Active Substance: PANTOPRAZOLE SODIUM
     Indication: PRODUCT USED FOR UNKNOWN INDICATION
     Dosage: ()
  252. PANTOPRAZOLE SODIUM SESQUIHYDRATE [Suspect]
     Active Substance: PANTOPRAZOLE SODIUM
     Dosage: ()
     Route: 065
  253. QUETIAPINE. [Concomitant]
     Active Substance: QUETIAPINE
     Indication: PRODUCT USED FOR UNKNOWN INDICATION
     Dosage: ()
  254. FURIX [Suspect]
     Active Substance: FUROSEMIDE
     Dosage: ()
     Route: 065
  255. KETORAX [Suspect]
     Active Substance: KETOBEMIDONE HYDROCHLORIDE
     Dosage: ()
     Route: 065
  256. NEURONTIN [Suspect]
     Active Substance: GABAPENTIN
     Dosage: ()
     Route: 065
  257. PINEX FORTE [Suspect]
     Active Substance: ACETAMINOPHEN\CODEINE PHOSPHATE
     Dosage: () ()
  258. TARGINIQ ER [Suspect]
     Active Substance: NALOXONE HYDROCHLORIDE\OXYCODONE HYDROCHLORIDE
     Indication: PRODUCT USED FOR UNKNOWN INDICATION
     Dosage: UNK ()
  259. TARGINIQ ER [Suspect]
     Active Substance: NALOXONE HYDROCHLORIDE\OXYCODONE HYDROCHLORIDE
     Route: 065
  260. TARGINIQ ER [Suspect]
     Active Substance: NALOXONE HYDROCHLORIDE\OXYCODONE HYDROCHLORIDE
     Dosage: UNK ()
     Route: 065
  261. BUSCOPAN [Suspect]
     Active Substance: BUTYLSCOPOLAMINE BROMIDE
     Indication: PRODUCT USED FOR UNKNOWN INDICATION
     Dosage: UNK
     Route: 065
  262. STESOLID [Suspect]
     Active Substance: DIAZEPAM
     Dosage: ()
     Route: 065
  263. TRAMADOL HYDROCHLORIDE. [Suspect]
     Active Substance: TRAMADOL HYDROCHLORIDE
     Dosage: UNK ()
     Route: 065
  264. TRAMADOL HYDROCHLORIDE. [Suspect]
     Active Substance: TRAMADOL HYDROCHLORIDE
     Dosage: UNK ()
     Route: 065
  265. DULCOLAX (BISACODYL) [Suspect]
     Active Substance: BISACODYL
     Dosage: UNK ()
  266. VALIUM [Suspect]
     Active Substance: DIAZEPAM
     Dosage: ()
     Route: 065
  267. VALIUM [Suspect]
     Active Substance: DIAZEPAM
     Dosage: ()
     Route: 065
  268. SOBRIL [Suspect]
     Active Substance: OXAZEPAM
     Indication: PRODUCT USED FOR UNKNOWN INDICATION
     Dosage: UNK ()
  269. SOBRIL [Suspect]
     Active Substance: OXAZEPAM
     Dosage: ()
     Route: 065
  270. SOBRIL [Suspect]
     Active Substance: OXAZEPAM
     Dosage: ()
     Route: 065
  271. ONDANSETRON [Suspect]
     Active Substance: ONDANSETRON
     Dosage: ()
     Route: 065
  272. ZOFRAN [Suspect]
     Active Substance: ONDANSETRON HYDROCHLORIDE
     Indication: PRODUCT USED FOR UNKNOWN INDICATION
     Dosage: UNK ()
     Route: 065
  273. ZOFRAN [Suspect]
     Active Substance: ONDANSETRON HYDROCHLORIDE
     Dosage: UNK ()
     Route: 065
  274. PREDNISOLONE. [Suspect]
     Active Substance: PREDNISOLONE
     Dosage: UNK ()
  275. PREDNISOLONE. [Suspect]
     Active Substance: PREDNISOLONE
     Dosage: ()
     Route: 065
  276. FLUCONAZOL [Suspect]
     Active Substance: FLUCONAZOLE
     Dosage: UNK ()
  277. FLUCONAZOL [Suspect]
     Active Substance: FLUCONAZOLE
     Dosage: ()
     Route: 065
  278. AFIPRAN [Suspect]
     Active Substance: METOCLOPRAMIDE HYDROCHLORIDE
     Dosage: () ()
  279. ZOPICLONE [Suspect]
     Active Substance: ZOPICLONE
     Indication: PRODUCT USED FOR UNKNOWN INDICATION
     Dosage: UNK ()
     Route: 065
  280. BACLOFEN. [Suspect]
     Active Substance: BACLOFEN
     Dosage: ()
     Route: 065
  281. BACLOFEN. [Suspect]
     Active Substance: BACLOFEN
     Dosage: ()
     Route: 065
  282. SOMAC [Suspect]
     Active Substance: PANTOPRAZOLE SODIUM
     Dosage: UNK ()
  283. SOMAC [Suspect]
     Active Substance: PANTOPRAZOLE SODIUM
     Dosage: ()
  284. SOMAC [Suspect]
     Active Substance: PANTOPRAZOLE SODIUM
     Dosage: UNK ()
  285. MIDAZOLAM [Suspect]
     Active Substance: MIDAZOLAM HYDROCHLORIDE
     Dosage: UNK ()
     Route: 065
  286. SETOFILM [Suspect]
     Active Substance: ONDANSETRON
     Dosage: () ()
     Route: 065
  287. OXYNORM [Suspect]
     Active Substance: OXYCODONE HYDROCHLORIDE
     Indication: PRODUCT USED FOR UNKNOWN INDICATION
     Dosage: UNK ()
     Route: 065
  288. OXYNORM [Suspect]
     Active Substance: OXYCODONE HYDROCHLORIDE
     Dosage: UNK ()
     Route: 065
  289. OXYNORM [Suspect]
     Active Substance: OXYCODONE HYDROCHLORIDE
     Dosage: UNK ()
     Route: 065
  290. OXYNORM [Suspect]
     Active Substance: OXYCODONE HYDROCHLORIDE
     Dosage: UNK ()
     Route: 065
  291. GABAPENTIN. [Suspect]
     Active Substance: GABAPENTIN
     Indication: PRODUCT USED FOR UNKNOWN INDICATION
     Dosage: ()
  292. OXYCODONE HYDROCHLORIDE. [Suspect]
     Active Substance: OXYCODONE HYDROCHLORIDE
     Indication: DRUG ABUSE
     Dosage: ()
  293. MORPHINE SULFATE. [Suspect]
     Active Substance: MORPHINE SULFATE

REACTIONS (3)
  - Drug abuse [Unknown]
  - Drug diversion [Unknown]
  - Drug dependence [Unknown]
